FAERS Safety Report 11292270 (Version 1)
Quarter: 2015Q3

REPORT INFORMATION
  Report Type: Spontaneous
  Country: US (occurrence: None)
  Receive Date: 20150721
  Receipt Date: 20150721
  Transmission Date: 20151125
  Serious: No
  Sender: FDA-Public Use
  Company Number: None

PATIENT
  Age: 74 Year
  Sex: Female
  Weight: 79.38 kg

DRUGS (7)
  1. VITAMIN D3 [Concomitant]
     Active Substance: CHOLECALCIFEROL
  2. SIMCOR [Concomitant]
     Active Substance: NIACIN\SIMVASTATIN
  3. VITAMIN B [Concomitant]
     Active Substance: VITAMIN B
  4. CARTIA XT [Concomitant]
     Active Substance: DILTIAZEM HYDROCHLORIDE
  5. OMEPRAZOLE. [Suspect]
     Active Substance: OMEPRAZOLE
     Indication: GASTROOESOPHAGEAL REFLUX DISEASE
     Dosage: 1 QD  TAKEN BY MOUTH
     Route: 048
  6. DICLOFENAC/MISOPROST [Concomitant]
  7. GLUCOSOMIN-CHONDROTIN [Concomitant]

REACTIONS (4)
  - Gait disturbance [None]
  - Musculoskeletal disorder [None]
  - Myalgia [None]
  - Muscle spasms [None]

NARRATIVE: CASE EVENT DATE: 20150720
